FAERS Safety Report 13706723 (Version 1)
Quarter: 2017Q2

REPORT INFORMATION
  Report Type: Spontaneous
  Country: US (occurrence: US)
  Receive Date: 20170629
  Receipt Date: 20170629
  Transmission Date: 20170830
  Serious: Yes (Hospitalization)
  Sender: FDA-Public Use
  Company Number: None

PATIENT
  Age: 58 Year
  Sex: Male

DRUGS (1)
  1. ACETAMINOPHEN. [Suspect]
     Active Substance: ACETAMINOPHEN
     Indication: PAIN
     Dosage: 1000MG OTHER PO
     Route: 048
     Dates: start: 20170104, end: 20170106

REACTIONS (9)
  - International normalised ratio increased [None]
  - Vomiting [None]
  - Mental disorder [None]
  - Blood bilirubin increased [None]
  - Nausea [None]
  - Aspartate aminotransferase increased [None]
  - Alanine aminotransferase increased [None]
  - Abdominal pain [None]
  - Ocular icterus [None]

NARRATIVE: CASE EVENT DATE: 20170106
